FAERS Safety Report 7833683-4 (Version None)
Quarter: 2011Q4

REPORT INFORMATION
  Report Type: 
  Country: None (occurrence: None)
  Receive Date: 20111020
  Receipt Date: 20111005
  Transmission Date: 20120403
  Serious: Yes (Death, Hospitalization)
  Sender: FDA-Public Use
  Company Number: 2011MA013053

PATIENT
  Age: 69 Year
  Sex: Female

DRUGS (8)
  1. ESCITALOPRAM [Suspect]
     Dosage: 20 MG;QD
  2. VENLAFAXINE [Suspect]
     Dosage: 225 MG;QD
  3. OLANZAPINE [Suspect]
     Dosage: 5 MG;QD
  4. MIRTAZAPINE [Suspect]
     Indication: DEPRESSION
     Dosage: 45 MG;QD
  5. PAROXETINE HCL [Suspect]
     Dosage: 20 MG;QD
  6. REBOXETINE (REBOXETINE) [Suspect]
     Dosage: 4 MG;QD
  7. SERTRALINE HYDROCHLORIDE [Suspect]
     Dosage: 100 MG;QD
  8. QUETIAPINE FUMARATE [Suspect]
     Dosage: 300 MG;QD

REACTIONS (5)
  - PULMONARY EMBOLISM [None]
  - EMBOLISM VENOUS [None]
  - ANTIPHOSPHOLIPID ANTIBODIES POSITIVE [None]
  - DEPRESSION [None]
  - CONDITION AGGRAVATED [None]
